FAERS Safety Report 6017045-0 (Version None)
Quarter: 2008Q4

REPORT INFORMATION
  Report Type: 
  Country: None (occurrence: None)
  Receive Date: 20081223
  Receipt Date: 20081212
  Transmission Date: 20090506
  Serious: Yes (Hospitalization)
  Sender: FDA-Public Use
  Company Number: SE-BAXTER-2008BH013754

PATIENT
  Age: 31 Year
  Sex: Female

DRUGS (2)
  1. ENDOXAN BAXTER [Suspect]
     Indication: BREAST CANCER
     Route: 065
     Dates: start: 20081204, end: 20081204
  2. LAMOTRIGINE [Concomitant]
     Indication: EPILEPSY
     Route: 048
     Dates: start: 20080101

REACTIONS (1)
  - GRAND MAL CONVULSION [None]
